FAERS Safety Report 16573676 (Version 1)
Quarter: 2019Q3

REPORT INFORMATION
  Report Type: Spontaneous
  Country: JP (occurrence: JP)
  Receive Date: 20190715
  Receipt Date: 20190715
  Transmission Date: 20191004
  Serious: Yes (Hospitalization)
  Sender: FDA-Public Use
  Company Number: JP-BAYER-2019-127188

PATIENT
  Age: 76 Year
  Sex: Male
  Weight: 74 kg

DRUGS (15)
  1. BROTIZOLAM [Concomitant]
     Active Substance: BROTIZOLAM
  2. ESOMEPRAZOLE. [Concomitant]
     Active Substance: ESOMEPRAZOLE MAGNESIUM
  3. HOCHUEKKITO [ANGELICA ACUTILOBA ROOT;ASTRAGALUS SPP. ROOT;ATRACTYL [Concomitant]
  4. MECOBALAMIN [Concomitant]
     Active Substance: METHYLCOBALAMIN
  5. EPERISONE HYDROCHLORIDE [Concomitant]
     Active Substance: EPERISONE HYDROCHLORIDE
  6. ETODOLAC. [Concomitant]
     Active Substance: ETODOLAC
  7. REBAMIPIDE [Concomitant]
     Active Substance: REBAMIPIDE
  8. NEUROTROPIN [CYANOCOBALAMIN;LIDOCAINE HYDROCHLORIDE;PYRIDOXINE HYD [Concomitant]
  9. STIVARGA [Suspect]
     Active Substance: REGORAFENIB
     Indication: COLON CANCER
     Dosage: 120 MG, QD
     Route: 048
     Dates: start: 20190618, end: 20190628
  10. MIYA-BM [Concomitant]
     Active Substance: CLOSTRIDIUM BUTYRICUM SPORES STRAIN M-55
  11. AMLODIPINE OD TYK [Concomitant]
  12. LYRICA [Concomitant]
     Active Substance: PREGABALIN
  13. FUROSEMIDE. [Concomitant]
     Active Substance: FUROSEMIDE
  14. SENNOSIDE A+B CALCIUM [Concomitant]
     Active Substance: SENNOSIDES A AND B
  15. CYMBALTA [Concomitant]
     Active Substance: DULOXETINE HYDROCHLORIDE

REACTIONS (8)
  - Pain in extremity [None]
  - Pyrexia [Recovered/Resolved]
  - Nephrotic syndrome [Not Recovered/Not Resolved]
  - Mobility decreased [None]
  - Proteinuria [Not Recovered/Not Resolved]
  - Cellulitis [Not Recovered/Not Resolved]
  - Oedema peripheral [Not Recovered/Not Resolved]
  - Hypoalbuminaemia [Not Recovered/Not Resolved]

NARRATIVE: CASE EVENT DATE: 20190628
